FAERS Safety Report 10946086 (Version 2)
Quarter: 2015Q2

REPORT INFORMATION
  Report Type: Spontaneous
  Country: US (occurrence: US)
  Receive Date: 20150322
  Receipt Date: 20150526
  Transmission Date: 20150821
  Serious: No
  Sender: FDA-Public Use
  Company Number: US-JNJFOC-20150209838

PATIENT
  Age: 41 Year
  Sex: Male

DRUGS (3)
  1. RISPERIDONE. [Suspect]
     Active Substance: RISPERIDONE
     Indication: HASHIMOTO^S ENCEPHALOPATHY
     Dosage: DOSE INCREASED
     Route: 065
  2. RISPERIDONE. [Suspect]
     Active Substance: RISPERIDONE
     Indication: HASHIMOTO^S ENCEPHALOPATHY
     Route: 065
  3. RISPERIDONE. [Suspect]
     Active Substance: RISPERIDONE
     Indication: HASHIMOTO^S ENCEPHALOPATHY
     Route: 065

REACTIONS (3)
  - Sedation [Unknown]
  - Product use issue [Unknown]
  - Drug ineffective for unapproved indication [Unknown]
